FAERS Safety Report 9312088 (Version 5)
Quarter: 2013Q2

REPORT INFORMATION
  Report Type: Spontaneous
  Country: FR (occurrence: None)
  Receive Date: 20130128
  Receipt Date: 20130606
  Transmission Date: 20140414
  Serious: Yes (Other)
  Sender: FDA-Public Use
  Company Number: JPI-P-020361

PATIENT
  Age: 33 Year
  Sex: Female

DRUGS (3)
  1. XYREM [Suspect]
     Indication: CATAPLEXY
     Dosage: 4.5 GM (2.25 GM, 2 IN 1 D)
     Route: 048
     Dates: start: 20120221, end: 20120229
  2. NOMEGESTROL [Concomitant]
  3. KETOPROFEN [Concomitant]

REACTIONS (16)
  - Nausea [None]
  - Vertigo [None]
  - Hyperhidrosis [None]
  - Dizziness [None]
  - Decreased appetite [None]
  - Asthenia [None]
  - Thinking abnormal [None]
  - Back pain [None]
  - Blister [None]
  - Eczema [None]
  - Emotional disorder [None]
  - Acne [None]
  - Pustular psoriasis [None]
  - Skin discolouration [None]
  - Raynaud^s phenomenon [None]
  - Sjogren^s syndrome [None]
